FAERS Safety Report 14308533 (Version 10)
Quarter: 2022Q1

REPORT INFORMATION
  Report Type: Spontaneous
  Country: ES (occurrence: ES)
  Receive Date: 20171220
  Receipt Date: 20220315
  Transmission Date: 20220424
  Serious: Yes (Hospitalization, Other)
  Sender: FDA-Public Use
  Company Number: ES-AEMPS-297478

PATIENT
  Age: 78 Year
  Sex: Male

DRUGS (7)
  1. ERTAPENEM [Interacting]
     Active Substance: ERTAPENEM
     Indication: Pyrexia
     Dosage: 1 GRAM, ONCE A DAY
     Route: 065
     Dates: start: 20170929, end: 20171002
  2. ERTAPENEM [Interacting]
     Active Substance: ERTAPENEM
     Indication: Urinary tract infection
     Dosage: 1 GRAM, ONCE A DAY
     Route: 042
     Dates: start: 20170929, end: 20171002
  3. ERTAPENEM [Interacting]
     Active Substance: ERTAPENEM
     Indication: Urinary tract infection
  4. MEROPENEM [Interacting]
     Active Substance: MEROPENEM
     Indication: Pyrexia
     Dosage: 3 GRAM, ONCE A DAY
     Route: 042
     Dates: start: 20171002, end: 20171010
  5. MEROPENEM [Interacting]
     Active Substance: MEROPENEM
     Indication: Urinary tract infection
  6. QUETIAPINE [Interacting]
     Active Substance: QUETIAPINE
     Indication: Psychomotor hyperactivity
     Dosage: 25 MILLIGRAM, ONCE A DAY
     Route: 048
     Dates: start: 20170928, end: 20171003
  7. QUETIAPINE [Interacting]
     Active Substance: QUETIAPINE
     Indication: Agitation
     Dosage: UNK
     Route: 065

REACTIONS (3)
  - Encephalopathy [Recovered/Resolved]
  - Product use in unapproved indication [Unknown]
  - Off label use [Unknown]

NARRATIVE: CASE EVENT DATE: 20171002
